FAERS Safety Report 7811781-9 (Version None)
Quarter: 2011Q4

REPORT INFORMATION
  Report Type: 
  Country: None (occurrence: None)
  Receive Date: 20111013
  Receipt Date: 20111010
  Transmission Date: 20120403
  Serious: Yes (Other)
  Sender: FDA-Public Use
  Company Number: US-SHIONOGI, INC-2011000167

PATIENT

DRUGS (6)
  1. KAPVAY [Suspect]
     Indication: INSOMNIA
  2. KAPVAY [Suspect]
     Indication: OFF LABEL USE
  3. CLONIDINE [Concomitant]
     Dosage: 0.2 MG, UNK
  4. CONCERTA [Concomitant]
     Dosage: 36 MG, UNK
  5. KAPVAY [Suspect]
     Indication: ATTENTION DEFICIT/HYPERACTIVITY DISORDER
     Dosage: 0.1 MG AT BEDTIME
     Route: 048
     Dates: start: 20110721, end: 20110721
  6. CONCERTA [Concomitant]
     Dosage: 27 MG, UNK

REACTIONS (4)
  - SOMNOLENCE [None]
  - HALLUCINATION, VISUAL [None]
  - INSOMNIA [None]
  - SCREAMING [None]
